FAERS Safety Report 7377969-9 (Version None)
Quarter: 2011Q1

REPORT INFORMATION
  Report Type: 
  Country: None (occurrence: None)
  Receive Date: 20110328
  Receipt Date: 20110324
  Transmission Date: 20110831
  Serious: Yes (Death, Hospitalization, Other)
  Sender: FDA-Public Use
  Company Number: US-AMGEN-USASP2011012141

PATIENT
  Age: 82 Year
  Sex: Male
  Weight: 171.5 kg

DRUGS (2)
  1. NPLATE [Suspect]
     Indication: IDIOPATHIC THROMBOCYTOPENIC PURPURA
     Dosage: 90 A?G, QWK
     Route: 058
     Dates: start: 20101001, end: 20101008
  2. ACETAMINOPHEN [Concomitant]
     Dosage: UNK
     Dates: start: 20101001, end: 20101008

REACTIONS (4)
  - DELIRIUM [None]
  - AGITATION [None]
  - FAILURE TO THRIVE [None]
  - DEMENTIA ALZHEIMER'S TYPE [None]
